FAERS Safety Report 8940076 (Version 1)
Quarter: 2012Q4

REPORT INFORMATION
  Report Type: 
  Country: US (occurrence: US)
  Receive Date: 20121130
  Receipt Date: 20121130
  Transmission Date: 20130627
  Serious: No
  Sender: FDA-Public Use
  Company Number: US-009507513-1211USA012892

PATIENT
  Age: 9 Month
  Sex: Male
  Weight: 11.34 kg

DRUGS (2)
  1. CLARITIN ORAL SOLUTION [Suspect]
     Indication: HYPERSENSITIVITY
     Dosage: 1 mg, Once
     Route: 048
     Dates: start: 20121015
  2. CLARITIN ORAL SOLUTION [Suspect]
     Indication: MEDICAL OBSERVATION

REACTIONS (3)
  - Restlessness [Not Recovered/Not Resolved]
  - Drug administered to patient of inappropriate age [Unknown]
  - Off label use [Unknown]
